FAERS Safety Report 10161968 (Version 2)
Quarter: 2014Q2

REPORT INFORMATION
  Report Type: Spontaneous
  Country: US (occurrence: None)
  Receive Date: 20140507
  Receipt Date: 20140515
  Transmission Date: 20141212
  Serious: Yes (Hospitalization)
  Sender: FDA-Public Use
  Company Number: UCM201404-000066

PATIENT
  Age: 35 Year
  Sex: Male

DRUGS (3)
  1. AMLODIPINE (AMLODIPINE) (AMLODIPINE) [Suspect]
  2. VERAPAMIL [Suspect]
  3. METOPROLOL (METOPROLOL) (METOPROLOL) [Suspect]

REACTIONS (3)
  - Cardiogenic shock [None]
  - Pulseless electrical activity [None]
  - Incorrect dose administered [None]
